FAERS Safety Report 9753656 (Version 3)
Quarter: 2013Q4

REPORT INFORMATION
  Report Type: Spontaneous
  Country: US (occurrence: None)
  Receive Date: 20131211
  Receipt Date: 20131223
  Transmission Date: 20140711
  Serious: Yes (Hospitalization, Other)
  Sender: FDA-Public Use
  Company Number: 2013-000451

PATIENT
  Age: 79 Year
  Sex: Female

DRUGS (10)
  1. ATELVIA [Suspect]
     Indication: OSTEOPOROSIS POSTMENOPAUSAL
     Dosage: 35 MG ONCE WEEKLY, ORAL
     Route: 048
     Dates: start: 201204, end: 201302
  2. LABETALOL (LABETALOL) [Concomitant]
  3. ZETIA (EZETIMIBE) [Concomitant]
  4. LORTAB [Concomitant]
  5. CALCIUM (CALCIUM) [Concomitant]
  6. VITAMIN D /00318501/ (COLECALCIFEROL) [Concomitant]
  7. NORVASC (AMLODIPINE BESILATE) [Concomitant]
  8. POTASSIUM CHLORIDE (POTASSIUM CHLORIDE) [Concomitant]
  9. ACIPHEX (RABEPROZOLE SODIUM) [Concomitant]
  10. FUROSEMIDE (FUROSEMIDE) [Concomitant]

REACTIONS (18)
  - Muscle rupture [None]
  - Ligament rupture [None]
  - Bone pain [None]
  - Pain in extremity [None]
  - Pain in extremity [None]
  - Groin pain [None]
  - Back pain [None]
  - Muscular weakness [None]
  - Tremor [None]
  - Inflammation [None]
  - Tendon rupture [None]
  - Arthritis [None]
  - Musculoskeletal pain [None]
  - Osteoarthritis [None]
  - Hypoaesthesia [None]
  - Hypoaesthesia [None]
  - Burning sensation [None]
  - Thrombosis [None]
